FAERS Safety Report 21144482 (Version 5)
Quarter: 2023Q2

REPORT INFORMATION
  Report Type: Spontaneous
  Country: US (occurrence: US)
  Receive Date: 20220728
  Receipt Date: 20230429
  Transmission Date: 20230722
  Serious: No
  Sender: FDA-Public Use
  Company Number: US-PFIZER INC-PV202200032066

PATIENT
  Age: 73 Year
  Sex: Male

DRUGS (1)
  1. INLYTA [Suspect]
     Active Substance: AXITINIB
     Dosage: 5 MG
     Dates: start: 20220715, end: 20230422

REACTIONS (6)
  - Dysphonia [Unknown]
  - Hypersensitivity [Unknown]
  - Blood potassium increased [Unknown]
  - Proteinuria [Unknown]
  - Hypertension [Unknown]
  - Swelling [Unknown]
